FAERS Safety Report 4821218-X (Version None)
Quarter: 2005Q4

REPORT INFORMATION
  Report Type: 
  Country: None (occurrence: None)
  Receive Date: 20051107
  Receipt Date: 20051101
  Transmission Date: 20060501
  Serious: Yes (Hospitalization)
  Sender: FDA-Public Use
  Company Number: US-BOEHRINGER INGELHEIM PHARMACEUTICALS, INC.-2005-BP-19099BP

PATIENT
  Age: 75 Year
  Sex: Male

DRUGS (2)
  1. CATAPRES-TTS-1 [Suspect]
     Indication: HYPERTENSION
     Route: 061
  2. CARDIZEM [Concomitant]
     Indication: HYPERTENSION

REACTIONS (6)
  - BLOOD PRESSURE INCREASED [None]
  - DELIRIUM [None]
  - DRUG TOXICITY [None]
  - HEART RATE DECREASED [None]
  - LOSS OF CONSCIOUSNESS [None]
  - OVERDOSE [None]
